FAERS Safety Report 4414843-1 (Version None)
Quarter: 2004Q3

REPORT INFORMATION
  Report Type: 
  Country: None (occurrence: None)
  Receive Date: 20040804
  Receipt Date: 20031111
  Transmission Date: 20050211
  Serious: No
  Sender: FDA-Public Use
  Company Number: US-BRISTOL-MYERS SQUIBB COMPANY-12443826

PATIENT
  Age: 61 Year
  Sex: Female
  Weight: 77 kg

DRUGS (11)
  1. GLUCOVANCE [Suspect]
     Indication: BLOOD GLUCOSE ABNORMAL
     Dates: start: 20031030, end: 20031107
  2. STARLIX [Concomitant]
     Indication: BLOOD GLUCOSE ABNORMAL
     Route: 048
     Dates: start: 20030101, end: 20031023
  3. SYNTHROID [Concomitant]
  4. PLAVIX [Concomitant]
  5. ACIPHEX [Concomitant]
  6. MULTIVITAMIN WITH MINERALS [Concomitant]
  7. PSYLLIUM HUSK [Concomitant]
  8. CHROMIUM PICOLINATE [Concomitant]
  9. ASCORBIC ACID + BIOFLAVONOIDS [Concomitant]
  10. COENZYME Q10 [Concomitant]
  11. ATENOLOL [Concomitant]

REACTIONS (1)
  - CONSTIPATION [None]
